FAERS Safety Report 4608928-4 (Version None)
Quarter: 2005Q1

REPORT INFORMATION
  Report Type: 
  Country: None (occurrence: None)
  Receive Date: 20050311
  Receipt Date: 20050308
  Transmission Date: 20050727
  Serious: Yes (Hospitalization)
  Sender: FDA-Public Use
  Company Number: TCI2004A04471

PATIENT
  Age: 49 Year
  Sex: Female

DRUGS (7)
  1. LEUPLIN FOR INJECTION KT3.75 (LEUPROLIDE ACETATE) (INJECTION) [Suspect]
     Indication: MENORRHAGIA
     Dosage: 3.75 MG (3.75 MG, 1 IN 28 D)
     Route: 058
     Dates: start: 20041120, end: 20041218
  2. LEUPLIN FOR INJECTION KT3.75 (LEUPROLIDE ACETATE) (INJECTION) [Suspect]
     Indication: UTERINE LEIOMYOMA
     Dosage: 3.75 MG (3.75 MG, 1 IN 28 D)
     Route: 058
     Dates: start: 20041120, end: 20041218
  3. PLANOVAR (ETHINYL ESTRADIOL W/NORGESTREL) (TABLETS) [Suspect]
     Indication: MENORRHAGIA
     Dosage: SEE IMAGE
     Route: 048
     Dates: start: 20041120, end: 20041126
  4. PLANOVAR (ETHINYL ESTRADIOL W/NORGESTREL) (TABLETS) [Suspect]
     Indication: MENORRHAGIA
     Dosage: SEE IMAGE
     Route: 048
     Dates: start: 20041201, end: 20041202
  5. PLANOVAR (ETHINYL ESTRADIOL W/NORGESTREL) (TABLETS) [Suspect]
     Indication: MENORRHAGIA
     Dosage: SEE IMAGE
     Route: 048
     Dates: start: 20041203
  6. FERROMIA (FERROUS CITRATE) [Concomitant]
  7. CINAL (CINAL) [Concomitant]

REACTIONS (8)
  - ARTERIAL THROMBOSIS LIMB [None]
  - DIFFICULTY IN WALKING [None]
  - HYPOAESTHESIA [None]
  - INSOMNIA [None]
  - MENORRHAGIA [None]
  - MYALGIA [None]
  - OEDEMA PERIPHERAL [None]
  - PAIN IN EXTREMITY [None]
